FAERS Safety Report 15416047 (Version 1)
Quarter: 2018Q3

REPORT INFORMATION
  Report Type: Spontaneous
  Country: US (occurrence: US)
  Receive Date: 20180923
  Receipt Date: 20180923
  Transmission Date: 20181010
  Serious: Yes (Other)
  Sender: FDA-Public Use
  Company Number: US-STRIDES ARCOLAB LIMITED-2018SP006881

PATIENT

DRUGS (4)
  1. AMANTADINE HYDROCHLORIDE. [Suspect]
     Active Substance: AMANTADINE HYDROCHLORIDE
     Dosage: 274 MG, UNK
     Route: 048
  2. AMANTADINE HYDROCHLORIDE. [Suspect]
     Active Substance: AMANTADINE HYDROCHLORIDE
     Dosage: 137 MG, DOSE DECREASED
     Route: 048
  3. AMANTADINE HYDROCHLORIDE. [Suspect]
     Active Substance: AMANTADINE HYDROCHLORIDE
     Indication: DYSKINESIA
     Dosage: 137 MG, UNK
     Route: 048
  4. LEVODOPA [Concomitant]
     Active Substance: LEVODOPA
     Indication: DYSKINESIA
     Dosage: UNK, AT LEAST THREE TIMES DAILY
     Route: 065

REACTIONS (2)
  - Urinary retention [Unknown]
  - Constipation [Unknown]
